FAERS Safety Report 21334432 (Version 4)
Quarter: 2025Q2

REPORT INFORMATION
  Report Type: Spontaneous
  Country: US (occurrence: US)
  Receive Date: 20220914
  Receipt Date: 20250409
  Transmission Date: 20250716
  Serious: No
  Sender: LUPIN
  Company Number: US-SUNOVION-2022SUN002652AA

PATIENT
  Weight: 43 kg

DRUGS (4)
  1. XOPENEX HFA [Suspect]
     Active Substance: LEVALBUTEROL TARTRATE
     Indication: Lung disorder
  2. XOPENEX HFA [Suspect]
     Active Substance: LEVALBUTEROL TARTRATE
  3. XOPENEX HFA [Suspect]
     Active Substance: LEVALBUTEROL TARTRATE
  4. XOPENEX HFA [Suspect]
     Active Substance: LEVALBUTEROL TARTRATE

REACTIONS (10)
  - Nervousness [Recovered/Resolved]
  - Psychomotor hyperactivity [Unknown]
  - Throat irritation [Unknown]
  - Tremor [Unknown]
  - Device issue [Unknown]
  - Device difficult to use [Unknown]
  - Device malfunction [Unknown]
  - Device dispensing error [Unknown]
  - Incorrect dose administered [Unknown]
  - Product quality issue [Unknown]
